FAERS Safety Report 8402528-6 (Version None)
Quarter: 2012Q2

REPORT INFORMATION
  Report Type: 
  Country: None (occurrence: None)
  Receive Date: 20120601
  Receipt Date: 20120528
  Transmission Date: 20120825
  Serious: Yes (Hospitalization, Other)
  Sender: FDA-Public Use
  Company Number: PHHY2008JP17147

PATIENT
  Sex: Male
  Weight: 76 kg

DRUGS (1)
  1. GLEEVEC [Suspect]
     Indication: GASTROINTESTINAL STROMAL TUMOUR
     Dosage: 400 MG, PER DAY
     Route: 048
     Dates: start: 20080714, end: 20080805

REACTIONS (28)
  - LEUKOPENIA [None]
  - PLATELET COUNT DECREASED [None]
  - C-REACTIVE PROTEIN INCREASED [None]
  - LIVER DISORDER [None]
  - ASPARTATE AMINOTRANSFERASE INCREASED [None]
  - LIP EROSION [None]
  - MELAENA [None]
  - STEVENS-JOHNSON SYNDROME [None]
  - ERYTHEMA MULTIFORME [None]
  - ANORECTAL DISORDER [None]
  - ORAL DISORDER [None]
  - ERYTHEMA [None]
  - URINARY RETENTION [None]
  - DYSCHEZIA [None]
  - GENITAL LESION [None]
  - HEPATIC FUNCTION ABNORMAL [None]
  - BLOOD LACTATE DEHYDROGENASE INCREASED [None]
  - LEUCINE AMINOPEPTIDASE INCREASED [None]
  - PYREXIA [None]
  - DRUG INTOLERANCE [None]
  - MALAISE [None]
  - CONJUNCTIVAL HYPERAEMIA [None]
  - ORAL CANDIDIASIS [None]
  - OROPHARYNGEAL PAIN [None]
  - BLOOD BILIRUBIN INCREASED [None]
  - HAEMATOCRIT DECREASED [None]
  - MONOCYTE COUNT INCREASED [None]
  - ALANINE AMINOTRANSFERASE INCREASED [None]
